FAERS Safety Report 23608318 (Version 1)
Quarter: 2024Q1

REPORT INFORMATION
  Report Type: Report from Study
  Country: US (occurrence: US)
  Receive Date: 20240307
  Receipt Date: 20240307
  Transmission Date: 20240410
  Serious: No
  Sender: FDA-Public Use
  Company Number: US-INCYTE CORPORATION-2024IN001057

PATIENT

DRUGS (1)
  1. JAKAFI [Suspect]
     Active Substance: RUXOLITINIB
     Dosage: TAKE 10MG BY MOUTH ONCE  EVERY MORNING AND 5MG BY MOUTH  EVERY EVENING
     Route: 065

REACTIONS (3)
  - Product availability issue [Unknown]
  - Rash pruritic [Unknown]
  - Therapeutic response unexpected [Unknown]
